FAERS Safety Report 13776784 (Version 3)
Quarter: 2017Q3

REPORT INFORMATION
  Report Type: Report from Study
  Country: US (occurrence: US)
  Receive Date: 20170720
  Receipt Date: 20170731
  Transmission Date: 20171127
  Serious: Yes (Death)
  Sender: FDA-Public Use
  Company Number: US-EXELIXIS-CABO-17008806

PATIENT
  Age: 55 Year
  Sex: Male

DRUGS (16)
  1. CABOMETYX [Suspect]
     Active Substance: CABOZANTINIB S-MALATE
     Dosage: 40 MG, QD
     Route: 048
     Dates: start: 20170622, end: 201707
  2. METFORMIN [Concomitant]
     Active Substance: METFORMIN HYDROCHLORIDE
  3. VITAMIN B12 [Concomitant]
     Active Substance: CYANOCOBALAMIN
  4. LEVOTHYROXINE. [Concomitant]
     Active Substance: LEVOTHYROXINE
  5. PREDNISONE. [Concomitant]
     Active Substance: PREDNISONE
  6. CITALOPRAM [Concomitant]
     Active Substance: CITALOPRAM HYDROBROMIDE
  7. NYSTATIN. [Concomitant]
     Active Substance: NYSTATIN
  8. CALCIUM CARBONATE. [Concomitant]
     Active Substance: CALCIUM CARBONATE
  9. MAGNESIUM [Concomitant]
     Active Substance: MAGNESIUM
  10. DEXAMETHASONE. [Concomitant]
     Active Substance: DEXAMETHASONE
  11. CABOMETYX [Suspect]
     Active Substance: CABOZANTINIB S-MALATE
     Indication: RENAL CANCER
     Dosage: 60 MG, QD
     Route: 048
     Dates: start: 20170308, end: 20170621
  12. TYLENOL [Concomitant]
     Active Substance: ACETAMINOPHEN
  13. GLIPIZIDE. [Concomitant]
     Active Substance: GLIPIZIDE
  14. ONDANSETRON [Concomitant]
     Active Substance: ONDANSETRON
  15. XGEVA [Concomitant]
     Active Substance: DENOSUMAB
  16. INSULIN [Concomitant]
     Active Substance: INSULIN NOS

REACTIONS (12)
  - Flatulence [Unknown]
  - Decreased appetite [Not Recovered/Not Resolved]
  - Asthenia [Unknown]
  - Death [Fatal]
  - Metastases to bone [Unknown]
  - Oral pain [Not Recovered/Not Resolved]
  - Blood magnesium decreased [Unknown]
  - Nausea [Unknown]
  - Blood glucose increased [Unknown]
  - Fatigue [Not Recovered/Not Resolved]
  - Dysgeusia [Not Recovered/Not Resolved]
  - Diarrhoea [Not Recovered/Not Resolved]

NARRATIVE: CASE EVENT DATE: 201707
